FAERS Safety Report 8183179 (Version 3)
Quarter: 2012Q4

REPORT INFORMATION
  Report Type: 
  Country: GB (occurrence: GB)
  Receive Date: 20111017
  Receipt Date: 20120914
  Transmission Date: 20130627
  Serious: Yes (Hospitalization)
  Sender: FDA-Public Use
  Company Number: PHFR2011GB05757

PATIENT
  Sex: Male

DRUGS (3)
  1. CLOZARIL [Suspect]
     Indication: SCHIZOPHRENIA
     Dosage: 650 mg
     Route: 048
     Dates: start: 20090403, end: 201110
  2. AMISULPRIDE [Concomitant]
     Indication: SCHIZOPHRENIA
     Dosage: 200 mg, UNK
     Route: 048
     Dates: end: 201201
  3. VALPROATE SODIUM [Concomitant]
     Indication: SCHIZOPHRENIA
     Dosage: 600 mg, UNK
     Route: 048
     Dates: end: 201201

REACTIONS (7)
  - Gastrointestinal disorder [Unknown]
  - Dehydration [Unknown]
  - Dysuria [Unknown]
  - Weight decreased [Unknown]
  - Circulatory collapse [Recovered/Resolved]
  - Constipation [Recovered/Resolved]
  - Fall [None]
